FAERS Safety Report 19265184 (Version 3)
Quarter: 2021Q4

REPORT INFORMATION
  Report Type: Spontaneous
  Country: US (occurrence: US)
  Receive Date: 20210517
  Receipt Date: 20211117
  Transmission Date: 20220304
  Serious: Yes (Other)
  Sender: FDA-Public Use
  Company Number: US-MLMSERVICE-20210427-2859061-1

PATIENT
  Age: 67 Year
  Sex: Female

DRUGS (3)
  1. GEMCITABINE HYDROCHLORIDE [Suspect]
     Active Substance: GEMCITABINE HYDROCHLORIDE
     Dosage: 2000 MG/M2, CYCLIC: GIVEN ON DAYS 1 AND 8 OF EACH CYCLE AS A 30- MIN INTRAVENOUS INFUSION IN 500 ML
     Route: 041
     Dates: start: 201510
  2. GEMCITABINE HYDROCHLORIDE [Suspect]
     Active Substance: GEMCITABINE HYDROCHLORIDE
     Dosage: 1000 MG/M2, CYCLIC (WAS GIVEN ON DAYS 1 AND 8 OF EACH CYCLE)
  3. CISPLATIN [Suspect]
     Active Substance: CISPLATIN
     Indication: Transitional cell carcinoma
     Dosage: 70 MG/M2, CYCLIC (ON DAY 1 AS A 4-H INTRAVENOUS INFUSION IN 1 L SALINE)
     Route: 041
     Dates: start: 201510

REACTIONS (8)
  - Anaemia [Unknown]
  - Neutropenia [Unknown]
  - Depression [Unknown]
  - Nausea [Unknown]
  - Diarrhoea [Unknown]
  - Off label use [Unknown]
  - Asthenia [Unknown]
  - Fatigue [Unknown]

NARRATIVE: CASE EVENT DATE: 20150101
